FAERS Safety Report 8560634-X (Version None)
Quarter: 2012Q3

REPORT INFORMATION
  Report Type: 
  Country: None (occurrence: None)
  Receive Date: 20120727
  Receipt Date: 20120727
  Transmission Date: 20120928
  Serious: Yes (Hospitalization)
  Sender: FDA-Public Use
  Company Number: None

PATIENT
  Age: 80 Year
  Sex: Male
  Weight: 82.7 kg

DRUGS (12)
  1. M.V.I. [Concomitant]
  2. TYLENOL [Concomitant]
  3. FISH OIL [Concomitant]
  4. VITAMIN B-12 [Concomitant]
  5. ASPIRIN [Suspect]
     Indication: CORONARY ARTERY DISEASE
     Dosage: 325 MG DAILY PO CHRONIC
     Route: 048
  6. LIPITOR [Concomitant]
  7. LOTREL [Concomitant]
  8. ALTACE [Concomitant]
  9. PLETAL [Suspect]
     Indication: CORONARY ARTERY DISEASE
     Dosage: 100MG BID PO CHRONIC
     Route: 048
  10. VIT C [Concomitant]
  11. VIT B6 [Concomitant]
  12. LASIX [Concomitant]

REACTIONS (3)
  - DUODENAL ULCER [None]
  - IRON DEFICIENCY ANAEMIA [None]
  - UPPER GASTROINTESTINAL HAEMORRHAGE [None]
